FAERS Safety Report 17725812 (Version 4)
Quarter: 2021Q4

REPORT INFORMATION
  Report Type: Report from Study
  Country: GB (occurrence: GB)
  Receive Date: 20200429
  Receipt Date: 20211030
  Transmission Date: 20220303
  Serious: Yes (Other)
  Sender: FDA-Public Use
  Company Number: NVSC2020GB115828

PATIENT
  Sex: Female

DRUGS (2)
  1. HYRIMOZ [Suspect]
     Active Substance: ADALIMUMAB-ADAZ
     Indication: Rheumatoid arthritis
     Dosage: 40 MG, QW (40/0.8MG/ML)
     Route: 058
     Dates: start: 20191204
  2. HYRIMOZ [Suspect]
     Active Substance: ADALIMUMAB-ADAZ
     Dosage: 40 MG, QW
     Route: 058
     Dates: start: 20191128

REACTIONS (10)
  - Condition aggravated [Unknown]
  - Pain [Unknown]
  - Arthralgia [Unknown]
  - Pain in jaw [Unknown]
  - Poor quality sleep [Unknown]
  - Myalgia [Unknown]
  - Pain in extremity [Unknown]
  - Crying [Unknown]
  - Depressed mood [Unknown]
  - Drug ineffective [Unknown]
